FAERS Safety Report 15298340 (Version 4)
Quarter: 2019Q1

REPORT INFORMATION
  Report Type: Report from Study
  Country: US (occurrence: US)
  Receive Date: 20180820
  Receipt Date: 20190205
  Transmission Date: 20190417
  Serious: Yes (Hospitalization)
  Sender: FDA-Public Use
  Company Number: US-ACTELION-A-NJ2018-166318

PATIENT
  Age: 46 Year
  Sex: Male
  Weight: 84.81 kg

DRUGS (13)
  1. SILDENAFIL. [Concomitant]
     Active Substance: SILDENAFIL
     Indication: PULMONARY ARTERIAL HYPERTENSION
  2. LISINOPRIL. [Concomitant]
     Active Substance: LISINOPRIL
  3. PREZISTA [Concomitant]
     Active Substance: DARUNAVIR ETHANOLATE
     Dosage: UNK
  4. HYDRALAZINE [Concomitant]
     Active Substance: HYDRALAZINE HYDROCHLORIDE
  5. COREG [Concomitant]
     Active Substance: CARVEDILOL
     Dosage: UNK
  6. ALDACTONE [Concomitant]
     Active Substance: SPIRONOLACTONE
     Dosage: UNK
  7. WARFARIN [Concomitant]
     Active Substance: WARFARIN
  8. NORVAC [Concomitant]
     Active Substance: AMLODIPINE BESYLATE
     Dosage: UNK
  9. REMODULIN [Concomitant]
     Active Substance: TREPROSTINIL
  10. UPTRAVI [Suspect]
     Active Substance: SELEXIPAG
     Indication: PULMONARY ARTERIAL HYPERTENSION
     Dosage: 800 MCG, BID
     Route: 048
  11. LETAIRIS [Concomitant]
     Active Substance: AMBRISENTAN
     Dosage: UNK
  12. ADEMPAS [Concomitant]
     Active Substance: RIOCIGUAT
     Dosage: UNK
  13. BUMEX [Concomitant]
     Active Substance: BUMETANIDE
     Dosage: UNK

REACTIONS (16)
  - Therapy change [Unknown]
  - Pulmonary hypertension [Recovered/Resolved]
  - Pain [Recovered/Resolved]
  - Disease progression [Recovered/Resolved]
  - Dyspnoea [Recovered/Resolved]
  - Loss of consciousness [Unknown]
  - Blood pressure decreased [Recovered/Resolved]
  - Sleep disorder [Unknown]
  - Weight decreased [Unknown]
  - Rash [Unknown]
  - Fluid overload [Recovered/Resolved]
  - Feeling jittery [Unknown]
  - Nervousness [Unknown]
  - Swelling [Recovered/Resolved]
  - Diarrhoea [Unknown]
  - Dehydration [Unknown]

NARRATIVE: CASE EVENT DATE: 20180110
